FAERS Safety Report 5104250-0 (Version None)
Quarter: 2006Q3

REPORT INFORMATION
  Report Type: 
  Country: None (occurrence: None)
  Receive Date: 20060911
  Receipt Date: 20060628
  Transmission Date: 20061208
  Serious: Yes (Hospitalization)
  Sender: FDA-Public Use
  Company Number: 2006VX000805

PATIENT
  Age: 38 Year
  Sex: Male

DRUGS (1)
  1. LIBRIUM [Suspect]
     Dosage: 10 GM; X1; PO
     Route: 048

REACTIONS (7)
  - BLOOD PRESSURE SYSTOLIC INCREASED [None]
  - CONJUNCTIVAL HAEMORRHAGE [None]
  - GENERAL PHYSICAL CONDITION ABNORMAL [None]
  - INTENTIONAL OVERDOSE [None]
  - RESPIRATORY RATE INCREASED [None]
  - STEVENS-JOHNSON SYNDROME [None]
  - SUICIDE ATTEMPT [None]
